FAERS Safety Report 9230770 (Version 1)
Quarter: 2013Q2

REPORT INFORMATION
  Report Type: Report from Study
  Country: CA (occurrence: CA)
  Receive Date: 20130415
  Receipt Date: 20130415
  Transmission Date: 20140414
  Serious: Yes (Other)
  Sender: FDA-Public Use
  Company Number: CA-ROCHE-1151176

PATIENT
  Age: 54 Year
  Sex: Female
  Weight: 53.1 kg

DRUGS (3)
  1. AVASTIN [Suspect]
     Indication: OVARIAN CANCER
     Route: 042
     Dates: start: 20121025, end: 20130221
  2. CARBOPLATIN [Suspect]
     Indication: OVARIAN CANCER
     Route: 065
     Dates: end: 201301
  3. TAXOL [Concomitant]
     Route: 065
     Dates: end: 201301

REACTIONS (5)
  - Rectal haemorrhage [Recovering/Resolving]
  - Infusion related reaction [Recovered/Resolved]
  - Constipation [Not Recovered/Not Resolved]
  - Carbohydrate antigen 125 increased [Unknown]
  - Disease progression [Unknown]
